FAERS Safety Report 14465690 (Version 1)
Quarter: 2018Q1

REPORT INFORMATION
  Report Type: Spontaneous
  Country: IN (occurrence: IN)
  Receive Date: 20180131
  Receipt Date: 20180131
  Transmission Date: 20180509
  Serious: Yes (Other)
  Sender: FDA-Public Use
  Company Number: IN-CIPLA LTD.-2018IN02392

PATIENT

DRUGS (8)
  1. METHYLPREDNISOLONE. [Suspect]
     Active Substance: METHYLPREDNISOLONE
     Indication: IMMUNOSUPPRESSANT DRUG THERAPY
     Dosage: UNK
     Route: 065
  2. ACYCLOVIR. [Suspect]
     Active Substance: ACYCLOVIR
     Indication: HEPATITIS
     Dosage: 500 MG, TID
     Route: 065
  3. FOLIC ACID. [Suspect]
     Active Substance: FOLIC ACID
     Indication: HEPATITIS
     Dosage: UNK
     Route: 065
  4. ACYCLOVIR. [Suspect]
     Active Substance: ACYCLOVIR
     Dosage: 200 MG, BID
     Route: 065
  5. TACROLIMUS. [Suspect]
     Active Substance: TACROLIMUS
     Indication: IMMUNOSUPPRESSANT DRUG THERAPY
     Dosage: UNK
     Route: 065
  6. UDILIV [Suspect]
     Active Substance: URSODIOL
     Indication: HEPATITIS
     Dosage: UNK
     Route: 065
  7. MYCOPHENOLATE MOFETIL. [Suspect]
     Active Substance: MYCOPHENOLATE MOFETIL
     Indication: IMMUNOSUPPRESSANT DRUG THERAPY
     Dosage: UNK
     Route: 065
  8. BRONAC [Suspect]
     Active Substance: BROMFENAC SODIUM
     Indication: HEPATITIS
     Dosage: UNK
     Route: 065

REACTIONS (9)
  - Hepatic failure [Recovered/Resolved]
  - Exposure during pregnancy [Unknown]
  - Blood glucose increased [None]
  - Acute hepatic failure [None]
  - Abortion induced [None]
  - Bacterial infection [Recovered/Resolved]
  - Vaginal haemorrhage [None]
  - Maternal exposure during pregnancy [None]
  - Liver transplant [None]
